FAERS Safety Report 20877425 (Version 1)
Quarter: 2022Q2

REPORT INFORMATION
  Report Type: Spontaneous
  Country: US (occurrence: None)
  Receive Date: 20220526
  Receipt Date: 20220526
  Transmission Date: 20220721
  Serious: No
  Sender: FDA-Public Use
  Company Number: None

PATIENT
  Age: 49 Year
  Sex: Male
  Weight: 94 kg

DRUGS (1)
  1. CASIRIVIMAB [Suspect]
     Active Substance: CASIRIVIMAB
     Indication: Upper respiratory tract infection
     Route: 042
     Dates: start: 20210826, end: 20210826

REACTIONS (2)
  - Chills [None]
  - Haemoptysis [None]

NARRATIVE: CASE EVENT DATE: 20210826
